FAERS Safety Report 6368111-1 (Version None)
Quarter: 2009Q3

REPORT INFORMATION
  Report Type: 
  Country: None (occurrence: None)
  Receive Date: 20090922
  Receipt Date: 20090915
  Transmission Date: 20100115
  Serious: Yes (Hospitalization)
  Sender: FDA-Public Use
  Company Number: PHHY2009GB37135

PATIENT
  Age: 60 Year
  Sex: Female

DRUGS (18)
  1. TEGRETOL [Suspect]
     Dosage: UPTO 600 MG/DAY
  2. TEGRETOL [Suspect]
     Dosage: 300 MG/DAY
  3. TEGRETOL [Suspect]
     Dosage: UPTO 400MG/DAY
     Dates: start: 20090401, end: 20090901
  4. KETOVITE [Concomitant]
     Dosage: 5 ML
  5. ETORICOXIB [Concomitant]
     Dosage: 90 MG
  6. PERINDOPRIL [Concomitant]
     Dosage: 4 MG, BID
  7. FUROSEMIDE [Concomitant]
     Dosage: 40 MG
  8. PREGABALIN [Concomitant]
     Dosage: 75 MG, BID
  9. ZINC [Concomitant]
     Dosage: 125 MG, TID
  10. NOVORAPID [Concomitant]
     Dosage: 20 U, TID
  11. CALCICHEW D3 [Concomitant]
     Dosage: UNK
  12. FERROUS SULFATE TAB [Concomitant]
     Dosage: 200 MG, BID
  13. SELENIUM [Concomitant]
     Dosage: 5 ML, BID
  14. DIHYDROCODEINE BITARTRATE INJ [Concomitant]
     Dosage: 60 MG, QD
  15. LANSOPRAZOLE [Concomitant]
     Dosage: 30 MG
  16. AQUEOUS CREAM [Concomitant]
  17. ARIPIPRAZOLE [Concomitant]
     Dosage: 5 MG
  18. FYBOGEL [Concomitant]

REACTIONS (3)
  - ALOPECIA [None]
  - EMOTIONAL DISTRESS [None]
  - SEDATION [None]
